FAERS Safety Report 9068066 (Version 1)
Quarter: 2013Q1

REPORT INFORMATION
  Report Type: Spontaneous
  Country: US (occurrence: US)
  Receive Date: 20130215
  Receipt Date: 20130215
  Transmission Date: 20140127
  Serious: No
  Sender: FDA-Public Use
  Company Number: US-BIOGENIDEC-2013BI013035

PATIENT
  Age: 38 None
  Sex: Female

DRUGS (1)
  1. TYSABRI [Suspect]
     Indication: MULTIPLE SCLEROSIS
     Route: 042
     Dates: start: 20110420

REACTIONS (4)
  - Diarrhoea haemorrhagic [Not Recovered/Not Resolved]
  - White blood cell count increased [Recovered/Resolved]
  - Infection [Unknown]
  - Influenza [Recovered/Resolved]
